FAERS Safety Report 15459846 (Version 1)
Quarter: 2018Q4

REPORT INFORMATION
  Report Type: Spontaneous
  Country: US (occurrence: US)
  Receive Date: 20181001
  Receipt Date: 20181001
  Transmission Date: 20190204
  Serious: Yes (Life-Threatening, Hospitalization)
  Sender: FDA-Public Use
  Company Number: None

PATIENT
  Age: 64 Year
  Sex: Male

DRUGS (2)
  1. WARFARIN [Suspect]
     Active Substance: WARFARIN
  2. ASPIRIN. [Suspect]
     Active Substance: ASPIRIN

REACTIONS (8)
  - Syncope [None]
  - Urinary retention [None]
  - Retroperitoneal haematoma [None]
  - Hypovolaemic shock [None]
  - Injury [None]
  - Acute kidney injury [None]
  - Fall [None]
  - Compression fracture [None]

NARRATIVE: CASE EVENT DATE: 20180115
